FAERS Safety Report 8916137 (Version 2)
Quarter: 2013Q1

REPORT INFORMATION
  Report Type: Spontaneous
  Country: US (occurrence: US)
  Receive Date: 20121120
  Receipt Date: 20130204
  Transmission Date: 20140127
  Serious: Yes (Death, Disabling)
  Sender: FDA-Public Use
  Company Number: US-GILEAD-2012-0064939

PATIENT
  Sex: Male

DRUGS (8)
  1. LETAIRIS [Suspect]
     Indication: PULMONARY HYPERTENSION
     Dosage: 10 MG, QD
     Route: 048
     Dates: start: 200811, end: 201211
  2. LETAIRIS [Suspect]
     Indication: UNEVALUABLE EVENT
  3. TYVASO [Concomitant]
  4. REVATIO [Concomitant]
  5. OXYGEN [Concomitant]
  6. ASPIRIN [Concomitant]
  7. ALLOPURINOL [Concomitant]
  8. BUMEX [Concomitant]

REACTIONS (3)
  - Cor pulmonale [Fatal]
  - Pulmonary hypertension [Fatal]
  - Pulmonary artery atresia [Fatal]
